FAERS Safety Report 5085677-2 (Version None)
Quarter: 2006Q3

REPORT INFORMATION
  Report Type: 
  Country: None (occurrence: None)
  Receive Date: 20060822
  Receipt Date: 20060811
  Transmission Date: 20061208
  Serious: Yes (Hospitalization)
  Sender: FDA-Public Use
  Company Number: JP-BRISTOL-MYERS SQUIBB COMPANY-13481288

PATIENT
  Age: 41 Year
  Sex: Female

DRUGS (6)
  1. ARIPIPRAZOLE [Suspect]
     Indication: SCHIZOPHRENIA
     Route: 048
     Dates: start: 20060801, end: 20060801
  2. ARIPIPRAZOLE [Suspect]
     Indication: SCHIZOAFFECTIVE DISORDER
     Route: 048
     Dates: start: 20060801, end: 20060801
  3. OLANZAPINE [Concomitant]
     Route: 048
  4. QUETIAPINE FUMARATE [Concomitant]
     Route: 048
  5. VALPROATE SODIUM [Concomitant]
     Route: 048
  6. LEVOMEPROMAZINE MALEATE [Concomitant]
     Route: 048

REACTIONS (1)
  - PSYCHIATRIC SYMPTOM [None]
